FAERS Safety Report 9537614 (Version 1)
Quarter: 2013Q3

REPORT INFORMATION
  Report Type: Spontaneous
  Country: FR (occurrence: FR)
  Receive Date: 20130919
  Receipt Date: 20130919
  Transmission Date: 20140515
  Serious: Yes (Other)
  Sender: FDA-Public Use
  Company Number: ALCN2013FR004688

PATIENT
  Age: 55 Year
  Sex: Female

DRUGS (3)
  1. TOBREX [Suspect]
     Indication: ULCERATIVE KERATITIS
     Dosage: UNK
     Route: 047
     Dates: start: 201304, end: 201304
  2. EURONAC [Suspect]
     Indication: ULCERATIVE KERATITIS
     Dosage: UNK
     Route: 047
     Dates: start: 201304, end: 201304
  3. CARTEOL [Suspect]
     Indication: GLAUCOMA
     Dosage: 1 GTT, QD
     Route: 047
     Dates: start: 20100201, end: 201110

REACTIONS (1)
  - Alopecia areata [Recovering/Resolving]
